FAERS Safety Report 7509810-5 (Version None)
Quarter: 2011Q2

REPORT INFORMATION
  Report Type: 
  Country: None (occurrence: None)
  Receive Date: 20110527
  Receipt Date: 20110323
  Transmission Date: 20111010
  Serious: Yes (Other)
  Sender: FDA-Public Use
  Company Number: A0912757A

PATIENT
  Age: 49 Year
  Sex: Female

DRUGS (3)
  1. ACETAMINOPHEN [Concomitant]
  2. CHANTIX [Suspect]
     Dosage: .5MG PER DAY
     Route: 048
     Dates: start: 20110116, end: 20110101
  3. WELLBUTRIN [Suspect]

REACTIONS (13)
  - WOUND SECRETION [None]
  - GENERALISED ERYTHEMA [None]
  - ANGER [None]
  - AGGRESSION [None]
  - AGITATION [None]
  - RASH [None]
  - DRUG HYPERSENSITIVITY [None]
  - DYSGEUSIA [None]
  - INSOMNIA [None]
  - BLISTER [None]
  - SLEEP DISORDER [None]
  - NERVOUSNESS [None]
  - FATIGUE [None]
